FAERS Safety Report 13180618 (Version 1)
Quarter: 2017Q1

REPORT INFORMATION
  Report Type: Spontaneous
  Country: FR (occurrence: FR)
  Receive Date: 20170202
  Receipt Date: 20170202
  Transmission Date: 20170428
  Serious: Yes (Hospitalization, Other)
  Sender: FDA-Public Use
  Company Number: FR-PFIZER INC-2017045107

PATIENT
  Age: 82 Year
  Sex: Female

DRUGS (13)
  1. NOVONORM [Suspect]
     Active Substance: REPAGLINIDE
     Indication: TYPE 2 DIABETES MELLITUS
     Dosage: 1 MG, 3X/DAY (MORNING, NOON AND EVENING)
     Route: 048
     Dates: end: 201611
  2. ONGLYZA [Suspect]
     Active Substance: SAXAGLIPTIN HYDROCHLORIDE
     Indication: TYPE 2 DIABETES MELLITUS
     Dosage: 5 MG, DAILY (AT MORNING)
     Route: 048
     Dates: start: 201511, end: 201611
  3. CORDARONE [Concomitant]
     Active Substance: AMIODARONE HYDROCHLORIDE
     Dosage: 200 MG, AT MORNING EVERY TWO DAYS
     Dates: end: 201611
  4. RAMIPRIL. [Suspect]
     Active Substance: RAMIPRIL
     Indication: HYPERTENSION
     Dosage: 5 MG, DAILY (AT MORNING)
     Route: 048
     Dates: end: 201611
  5. NITRIDERM [Concomitant]
     Active Substance: NITROGLYCERIN
     Dosage: 5 MG, DAILY
  6. LAMALINE [Concomitant]
     Active Substance: ACETAMINOPHEN\CAFFEINE\OPIUM
     Dosage: UNK UNK, DAILY (TWO TO SIX PILLS A DAY)
  7. COUMADINE [Concomitant]
     Active Substance: WARFARIN SODIUM
     Dosage: 1.5 DF, DAILY (AT EVENING)
  8. ELISOR [Concomitant]
     Active Substance: PRAVASTATIN SODIUM
     Dosage: 40 MG, DAILY (AT MORNING)
  9. SECTRAL [Concomitant]
     Active Substance: ACEBUTOLOL HYDROCHLORIDE
     Dosage: 0.5 DF, 2X/DAY (AT MORNING AND AT EVENING)
  10. CORDARONE [Concomitant]
     Active Substance: AMIODARONE HYDROCHLORIDE
     Dosage: 200 MG, AT MORNING EVERY TWO DAYS
  11. LASILIX [Concomitant]
     Active Substance: FUROSEMIDE
     Dosage: 40 MG, DAILY (AT MORNING)
  12. NORSET [Suspect]
     Active Substance: MIRTAZAPINE
     Indication: DEPRESSION
     Dosage: 2 DF, AT BEDTIME (AT EVENING)
     Route: 048
     Dates: end: 201611
  13. ELISOR [Concomitant]
     Active Substance: PRAVASTATIN SODIUM
     Dosage: 40 MG, DAILY (AT MORNING)
     Dates: end: 201611

REACTIONS (8)
  - Haematuria [Unknown]
  - Staphylococcal infection [Unknown]
  - White blood cell count increased [Unknown]
  - Epidermolysis bullosa [Unknown]
  - Escherichia test positive [Unknown]
  - Dermatitis bullous [Recovered/Resolved]
  - Hyperthermia [Unknown]
  - Toxic skin eruption [Unknown]

NARRATIVE: CASE EVENT DATE: 2016
